FAERS Safety Report 5799276-8 (Version None)
Quarter: 2008Q3

REPORT INFORMATION
  Report Type: 
  Country: None (occurrence: None)
  Receive Date: 20080702
  Receipt Date: 20080627
  Transmission Date: 20090109
  Serious: Yes (Other)
  Sender: FDA-Public Use
  Company Number: FR-PFIZER INC-2008050064

PATIENT
  Sex: Male
  Weight: 78 kg

DRUGS (4)
  1. TAHOR [Suspect]
  2. COVERSYL [Concomitant]
     Route: 048
  3. SELOKEN [Concomitant]
     Route: 048
  4. PREVISCAN [Concomitant]
     Route: 048

REACTIONS (1)
  - CYTOLYTIC HEPATITIS [None]
